FAERS Safety Report 25716911 (Version 1)
Quarter: 2025Q3

REPORT INFORMATION
  Report Type: Spontaneous
  Country: US (occurrence: US)
  Receive Date: 20250822
  Receipt Date: 20250822
  Transmission Date: 20251020
  Serious: Yes (Other)
  Sender: RK PHARMA
  Company Number: US-RK PHARMA, INC-20250800129

PATIENT

DRUGS (2)
  1. MITOMYCIN [Suspect]
     Active Substance: MITOMYCIN
     Indication: Open angle glaucoma
     Route: 065
  2. EPINEPHRINE\LIDOCAINE HYDROCHLORIDE [Concomitant]
     Active Substance: EPINEPHRINE\LIDOCAINE HYDROCHLORIDE
     Indication: Open angle glaucoma

REACTIONS (1)
  - Blebitis [Recovered/Resolved]
